FAERS Safety Report 4913775-X (Version None)
Quarter: 2006Q1

REPORT INFORMATION
  Report Type: 
  Country: None (occurrence: None)
  Receive Date: 20060216
  Receipt Date: 20051026
  Transmission Date: 20060701
  Serious: Yes (Hospitalization)
  Sender: FDA-Public Use
  Company Number: JP-JPN-A20052594

PATIENT
  Age: 73 Year
  Sex: Female
  Weight: 41 kg

DRUGS (4)
  1. PAXIL [Suspect]
     Indication: PSYCHIATRIC SYMPTOM
     Dosage: 10MG PER DAY
     Route: 048
     Dates: start: 20051013, end: 20051016
  2. SIFROL [Suspect]
     Indication: PARKINSON'S DISEASE
     Dosage: .125MG TWICE PER DAY
     Route: 048
     Dates: start: 20050929
  3. MENESIT [Suspect]
     Indication: PARKINSON'S DISEASE
     Dosage: 50MG SEE DOSAGE TEXT
     Route: 048
     Dates: start: 20050303, end: 20050316
  4. SYMMETREL [Concomitant]
     Indication: PARKINSON'S DISEASE
     Dosage: 100MG PER DAY
     Route: 048
     Dates: start: 20050623, end: 20050929

REACTIONS (4)
  - BLOOD CREATINE PHOSPHOKINASE INCREASED [None]
  - C-REACTIVE PROTEIN INCREASED [None]
  - NEUROLEPTIC MALIGNANT SYNDROME [None]
  - RED BLOOD CELL COUNT DECREASED [None]
